FAERS Safety Report 7396383-3 (Version None)
Quarter: 2011Q2

REPORT INFORMATION
  Report Type: 
  Country: None (occurrence: None)
  Receive Date: 20110406
  Receipt Date: 20110329
  Transmission Date: 20111010
  Serious: Yes (Hospitalization, Other)
  Sender: FDA-Public Use
  Company Number: US-SANOFI-AVENTIS-2011SA008534

PATIENT
  Age: 63 Year
  Sex: Female

DRUGS (4)
  1. PLAVIX [Suspect]
     Indication: TRANSIENT ISCHAEMIC ATTACK
     Route: 048
     Dates: start: 20010101
  2. PLAVIX [Suspect]
     Route: 048
     Dates: start: 20110201
  3. PLAVIX [Suspect]
     Route: 048
     Dates: start: 20100701
  4. ATENOLOL [Concomitant]

REACTIONS (12)
  - HAEMORRHOIDAL HAEMORRHAGE [None]
  - HAEMORRHAGE [None]
  - CATHETER SITE HAEMORRHAGE [None]
  - PRODUCT TASTE ABNORMAL [None]
  - PRODUCT QUALITY ISSUE [None]
  - CONDITION AGGRAVATED [None]
  - INSOMNIA [None]
  - CONTUSION [None]
  - SKIN HAEMORRHAGE [None]
  - EXPIRED DRUG ADMINISTERED [None]
  - CARDIAC DISORDER [None]
  - HAEMATOMA [None]
